FAERS Safety Report 9169218 (Version 4)
Quarter: 2013Q2

REPORT INFORMATION
  Report Type: Spontaneous
  Country: JP (occurrence: JP)
  Receive Date: 20130318
  Receipt Date: 20130508
  Transmission Date: 20140414
  Serious: Yes (Other)
  Sender: FDA-Public Use
  Company Number: JP-ROCHE-1201795

PATIENT
  Age: 42 Year
  Sex: Male

DRUGS (6)
  1. CELLCEPT [Suspect]
     Indication: PROPHYLAXIS AGAINST GRAFT VERSUS HOST DISEASE
     Dosage: DOSAGE IS UNCERTAIN
     Route: 048
  2. CELLCEPT [Suspect]
     Indication: OFF LABEL USE
  3. BUSULFAN [Concomitant]
     Indication: PRECURSOR T-LYMPHOBLASTIC LYMPHOMA/LEUKAEMIA STAGE I
     Route: 065
  4. CYCLOPHOSPHAMIDE [Concomitant]
     Indication: PRECURSOR T-LYMPHOBLASTIC LYMPHOMA/LEUKAEMIA STAGE I
     Dosage: DRUG REPORTED AS  CYCLOPHOSPHAMIDE HYDRATE
     Route: 065
  5. CICLOSPORIN [Concomitant]
     Indication: PROPHYLAXIS AGAINST GRAFT VERSUS HOST DISEASE
     Dosage: DOSAGE IS UNCERTAIN
     Route: 065
  6. URSODEOXYCHOLIC ACID [Concomitant]
     Indication: VENOOCCLUSIVE LIVER DISEASE
     Route: 065

REACTIONS (5)
  - Venoocclusive liver disease [Recovered/Resolved]
  - Fluid retention [Unknown]
  - Cardiopulmonary failure [Unknown]
  - Renal failure [Unknown]
  - Hypernatraemia [Unknown]
